FAERS Safety Report 20795819 (Version 1)
Quarter: 2022Q2

REPORT INFORMATION
  Report Type: Spontaneous
  Country: DE (occurrence: DE)
  Receive Date: 20220506
  Receipt Date: 20220506
  Transmission Date: 20220721
  Serious: Yes (Hospitalization)
  Sender: FDA-Public Use
  Company Number: DE-PFIZER INC-202200535516

PATIENT
  Age: 78 Year
  Sex: Male

DRUGS (5)
  1. VORICONAZOLE [Suspect]
     Active Substance: VORICONAZOLE
     Indication: Pneumonia fungal
     Dosage: 800 MILLIGRAM, QD (IN THE FIRST 24 HOURS)
     Route: 042
  2. VORICONAZOLE [Suspect]
     Active Substance: VORICONAZOLE
     Dosage: 400 MILLIGRAM, QD (MAINTAINING DOSE)
     Route: 042
  3. METOPROLOL TARTRATE [Concomitant]
     Active Substance: METOPROLOL TARTRATE
     Indication: Hypertension
     Dosage: 100 G, 1X/DAY
     Route: 048
  4. FELODIPINE [Concomitant]
     Active Substance: FELODIPINE
     Indication: Hypertension
     Dosage: 5 MG, 1X/DAY
     Route: 048
  5. BIAPENEM [Concomitant]
     Active Substance: BIAPENEM
     Dosage: 0.3 G, 3X/DAY
     Route: 042

REACTIONS (3)
  - Muscular weakness [Recovering/Resolving]
  - Myopathy toxic [Recovering/Resolving]
  - Myalgia [Recovering/Resolving]
